FAERS Safety Report 21001200 (Version 1)
Quarter: 2022Q2

REPORT INFORMATION
  Report Type: Spontaneous
  Country: US (occurrence: US)
  Receive Date: 20220624
  Receipt Date: 20220624
  Transmission Date: 20220721
  Serious: No
  Sender: FDA-Public Use
  Company Number: US-BioHaven Pharmaceuticals-2022BHV000837

PATIENT
  Age: 66 Year
  Sex: Female

DRUGS (1)
  1. NURTEC ODT [Suspect]
     Active Substance: RIMEGEPANT SULFATE
     Indication: Migraine
     Dosage: PATIENT RECEIVED HER FIRST AND ONLY NURTEC PACKAGE ON 13-SEP-2021. PATIENT TOOK ALL 8 TABLETS, NOT A
     Route: 065
     Dates: start: 20210913

REACTIONS (1)
  - Drug ineffective [Unknown]
